FAERS Safety Report 8426116-0 (Version None)
Quarter: 2012Q2

REPORT INFORMATION
  Report Type: 
  Country: None (occurrence: None)
  Receive Date: 20120611
  Receipt Date: 20120607
  Transmission Date: 20120825
  Serious: Yes (Death, Hospitalization)
  Sender: FDA-Public Use
  Company Number: CN-BAYER-200938597GPV

PATIENT
  Age: 48 Year
  Sex: Male
  Weight: 52 kg

DRUGS (6)
  1. SORAFENIB [Suspect]
     Indication: HEPATIC NEOPLASM MALIGNANT
     Route: 048
     Dates: start: 20090629, end: 20090911
  2. SORAFENIB [Suspect]
     Route: 048
  3. ERLOTINIB HYDROCHLORIDE [Suspect]
     Indication: HEPATIC NEOPLASM MALIGNANT
     Dosage: 150 MG (DAILY DOSE), , ORAL
     Route: 048
     Dates: start: 20090629, end: 20090820
  4. ERLOTINIB HYDROCHLORIDE [Suspect]
     Route: 048
  5. ERLOTINIB HYDROCHLORIDE [Suspect]
     Dosage: 100 MG (DAILY DOSE), , ORAL
     Route: 048
     Dates: start: 20090820, end: 20091101
  6. SORAFENIB [Suspect]
     Route: 048
     Dates: start: 20090911, end: 20091101

REACTIONS (2)
  - GASTROINTESTINAL ULCER [None]
  - RENAL FAILURE [None]
